FAERS Safety Report 18273022 (Version 1)
Quarter: 2020Q3

REPORT INFORMATION
  Report Type: Spontaneous
  Country: US (occurrence: US)
  Receive Date: 20200525
  Receipt Date: 20200525
  Transmission Date: 20201103
  Serious: No
  Sender: FDA-Public Use
  Company Number: None

PATIENT
  Age: 9 Decade
  Sex: Female

DRUGS (5)
  1. ECULIZUMAB [Suspect]
     Active Substance: ECULIZUMAB
     Dosage: ?          OTHER FREQUENCY:2 DOSES;?
     Route: 048
  2. LOPINAVIR?RITONAVIR [Suspect]
     Active Substance: LOPINAVIR\RITONAVIR
     Route: 048
  3. LOPINAVIR?RITONAVIR [Suspect]
     Active Substance: LOPINAVIR\RITONAVIR
     Indication: COVID-19
  4. HYDROXYCHLOROQUINE [Suspect]
     Active Substance: HYDROXYCHLOROQUINE
     Route: 048
  5. CEFTRIAXONE. [Suspect]
     Active Substance: CEFTRIAXONE
     Dosage: ?          OTHER ROUTE:IV?

REACTIONS (5)
  - Neutrophilia [None]
  - Cytopenia [None]
  - Off label use [None]
  - Leukocytosis [None]
  - Anaemia [None]
